FAERS Safety Report 6449351-X (Version None)
Quarter: 2009Q4

REPORT INFORMATION
  Report Type: 
  Country: None (occurrence: None)
  Receive Date: 20091120
  Receipt Date: 20090605
  Transmission Date: 20100525
  Serious: Yes (Death, Life-Threatening, Hospitalization, Disabling, Other)
  Sender: FDA-Public Use
  Company Number: GB-ABBOTT-06P-167-0350390-00

PATIENT
  Sex: Male

DRUGS (13)
  1. HUMIRA [Suspect]
     Indication: RHEUMATOID ARTHRITIS
     Route: 058
     Dates: start: 20040517, end: 20060904
  2. METHOTREXATE [Concomitant]
     Indication: RHEUMATOID ARTHRITIS
     Route: 048
     Dates: start: 20011103, end: 20060901
  3. FOLIC ACID [Concomitant]
     Indication: VITAMIN SUPPLEMENTATION
     Route: 048
     Dates: start: 20011103
  4. CO-CODAMOL [Concomitant]
     Indication: RHEUMATOID ARTHRITIS
     Dates: start: 19990101
  5. ARTHROTEC [Concomitant]
     Indication: RHEUMATOID ARTHRITIS
     Route: 048
     Dates: start: 19990701, end: 20061001
  6. DOTHIEPIN [Concomitant]
     Indication: INSOMNIA
     Route: 048
     Dates: start: 20010404
  7. PREDNISOLONE [Concomitant]
     Indication: RHEUMATOID ARTHRITIS
     Route: 048
     Dates: start: 20020121
  8. FOSAMAX [Concomitant]
     Indication: OSTEOPOROSIS
     Dates: start: 20030905
  9. ADCAL-D3 [Concomitant]
     Indication: OSTEOPOROSIS
     Route: 048
     Dates: start: 20030905
  10. AMLODIPINE [Concomitant]
     Indication: BLOOD PRESSURE INCREASED
     Route: 048
     Dates: start: 20031106, end: 20031202
  11. AMLODIPINE [Concomitant]
     Indication: HYPERTENSION
     Route: 048
     Dates: start: 20031202
  12. COMMERCIAL HUMIRA [Concomitant]
     Indication: RHEUMATOID ARTHRITIS
     Route: 058
     Dates: start: 20031208
  13. ASPIRIN [Concomitant]
     Indication: CARDIOVASCULAR EVENT PROPHYLAXIS
     Dates: start: 20060801

REACTIONS (2)
  - METASTASES TO LUNG [None]
  - METASTATIC RENAL CELL CARCINOMA [None]
